FAERS Safety Report 6302647-4 (Version None)
Quarter: 2009Q3

REPORT INFORMATION
  Report Type: 
  Country: None (occurrence: None)
  Receive Date: 20090810
  Receipt Date: 20090731
  Transmission Date: 20100115
  Serious: Yes (Hospitalization)
  Sender: FDA-Public Use
  Company Number: CL-AMGEN-US229009

PATIENT
  Sex: Male

DRUGS (8)
  1. PANITUMUMAB [Suspect]
     Indication: COLORECTAL CANCER
     Route: 042
     Dates: start: 20070515, end: 20070629
  2. PANITUMUMAB [Suspect]
     Route: 042
     Dates: start: 20070809
  3. OXALIPLATIN [Concomitant]
     Route: 065
     Dates: start: 20070515
  4. LEUCOVORIN CALCIUM [Concomitant]
     Route: 065
     Dates: start: 20070515
  5. 5-FU [Concomitant]
     Route: 065
     Dates: start: 20070515
  6. TRAMADOL [Concomitant]
     Route: 065
  7. PARACETAMOL [Concomitant]
     Route: 065
  8. LACTULOSE [Concomitant]
     Route: 065

REACTIONS (3)
  - GROIN ABSCESS [None]
  - LARGE INTESTINE PERFORATION [None]
  - NEUTROPENIA [None]
